FAERS Safety Report 11114022 (Version 2)
Quarter: 2015Q2

REPORT INFORMATION
  Report Type: Spontaneous
  Country: US (occurrence: US)
  Receive Date: 20150514
  Receipt Date: 20150515
  Transmission Date: 20150821
  Serious: No
  Sender: FDA-Public Use
  Company Number: US-009507513-1505USA001227

PATIENT
  Age: 56 Year
  Sex: Female

DRUGS (2)
  1. DULERA [Suspect]
     Active Substance: FORMOTEROL FUMARATE DIHYDRATE\MOMETASONE FUROATE
     Indication: SINUSITIS
     Dosage: TWO PUFFS, BID
     Route: 055
     Dates: start: 20150429, end: 20150501
  2. DULERA [Suspect]
     Active Substance: FORMOTEROL FUMARATE DIHYDRATE\MOMETASONE FUROATE
     Indication: BRONCHITIS

REACTIONS (5)
  - Candida infection [Recovering/Resolving]
  - Dysphonia [Recovering/Resolving]
  - Glossodynia [Recovering/Resolving]
  - Glossitis [Recovering/Resolving]
  - Off label use [Unknown]

NARRATIVE: CASE EVENT DATE: 20150429
